FAERS Safety Report 15716633 (Version 2)
Quarter: 2019Q1

REPORT INFORMATION
  Report Type: Spontaneous
  Country: US (occurrence: US)
  Receive Date: 20181213
  Receipt Date: 20190130
  Transmission Date: 20190417
  Serious: Yes (Hospitalization, Other)
  Sender: FDA-Public Use
  Company Number: US-BIOGEN-2018BI00625821

PATIENT
  Age: 10 Year
  Sex: Male

DRUGS (1)
  1. SPINRAZA [Suspect]
     Active Substance: NUSINERSEN
     Indication: SPINAL MUSCULAR ATROPHY
     Route: 065
     Dates: start: 20170914

REACTIONS (6)
  - Headache [Recovered/Resolved]
  - Ureteric obstruction [Not Recovered/Not Resolved]
  - Procedural haemorrhage [Recovered/Resolved]
  - Kidney enlargement [Not Recovered/Not Resolved]
  - Cardiac arrest [Recovered/Resolved]
  - Asthenia [Recovered/Resolved]

NARRATIVE: CASE EVENT DATE: 201807
